FAERS Safety Report 12088936 (Version 1)
Quarter: 2016Q1

REPORT INFORMATION
  Report Type: Spontaneous
  Country: US (occurrence: US)
  Receive Date: 20160218
  Receipt Date: 20160218
  Transmission Date: 20160526
  Serious: No
  Sender: FDA-Public Use
  Company Number: US-GLAXOSMITHKLINE-US2016021534

PATIENT
  Sex: Male

DRUGS (1)
  1. POTIGA [Suspect]
     Active Substance: EZOGABINE
     Indication: EPILEPSY
     Dosage: UNK
     Route: 048

REACTIONS (3)
  - Retinal depigmentation [Unknown]
  - Chromaturia [Unknown]
  - Skin discolouration [Unknown]
